FAERS Safety Report 12689836 (Version 1)
Quarter: 2016Q3

REPORT INFORMATION
  Report Type: Spontaneous
  Country: FR (occurrence: FR)
  Receive Date: 20160826
  Receipt Date: 20160826
  Transmission Date: 20161109
  Serious: Yes (Death)
  Sender: FDA-Public Use
  Company Number: FR-GUERBET LLC-1056763

PATIENT
  Age: 72 Year
  Sex: Male

DRUGS (1)
  1. OPTIRAY [Suspect]
     Active Substance: IOVERSOL
     Indication: COMPUTERISED TOMOGRAM
     Route: 042
     Dates: start: 20160802

REACTIONS (3)
  - Cardio-respiratory arrest [Fatal]
  - Respiratory distress [Fatal]
  - Hyperventilation [Fatal]

NARRATIVE: CASE EVENT DATE: 20160802
